FAERS Safety Report 8257520-1 (Version None)
Quarter: 2012Q2

REPORT INFORMATION
  Report Type: 
  Country: None (occurrence: None)
  Receive Date: 20120403
  Receipt Date: 20120319
  Transmission Date: 20120825
  Serious: Yes (Other)
  Sender: FDA-Public Use
  Company Number: SG-WATSON-2012-05433

PATIENT
  Age: 53 Year
  Sex: Female

DRUGS (2)
  1. LAMOTRIGINE [Suspect]
     Indication: TRIGEMINAL NEURALGIA
     Dosage: UNK UNK, UNKNOWN
     Route: 065
     Dates: start: 20081001, end: 20081101
  2. CARBAMAZEPINE [Suspect]
     Indication: TRIGEMINAL NEURALGIA
     Dosage: 200 MG, BID
     Route: 065
     Dates: start: 20060101, end: 20080401

REACTIONS (1)
  - HYPOGAMMAGLOBULINAEMIA [None]
